FAERS Safety Report 15534697 (Version 1)
Quarter: 2018Q4

REPORT INFORMATION
  Report Type: Spontaneous
  Country: AU (occurrence: AU)
  Receive Date: 20181022
  Receipt Date: 20181022
  Transmission Date: 20190205
  Serious: No
  Sender: FDA-Public Use
  Company Number: AU-IPSEN BIOPHARMACEUTICALS, INC.-2018-15679

PATIENT
  Age: 71 Year
  Sex: Female

DRUGS (3)
  1. DYSPORT [Suspect]
     Active Substance: ABOBOTULINUMTOXINA
     Indication: SKIN WRINKLING
     Route: 030
  2. DYSPORT [Suspect]
     Active Substance: ABOBOTULINUMTOXINA
     Indication: PRODUCT USED FOR UNKNOWN INDICATION
  3. DYSPORT [Suspect]
     Active Substance: ABOBOTULINUMTOXINA
     Indication: OFF LABEL USE
     Dosage: 10 UNITS AT MID FRONTALIS AND LEFT LATERAL ORBICULAR OCULI.
     Route: 030

REACTIONS (3)
  - Brow ptosis [Unknown]
  - Off label use [Unknown]
  - Eyelid ptosis [Unknown]
